FAERS Safety Report 18594416 (Version 7)
Quarter: 2024Q1

REPORT INFORMATION
  Report Type: Other
  Country: DE (occurrence: None)
  Receive Date: 20201209
  Receipt Date: 20240131
  Transmission Date: 20240409
  Serious: Yes (Hospitalization, Other)
  Sender: FDA-Public Use
  Company Number: DE-ROCHE-2493848

PATIENT
  Age: 32 Year
  Sex: Male

DRUGS (5)
  1. OCREVUS [Suspect]
     Active Substance: OCRELIZUMAB
     Indication: Relapsing-remitting multiple sclerosis
     Dosage: 600 MG EVERY 178 DAYS
     Route: 042
     Dates: start: 20190130
  2. IBUPROFEN [Concomitant]
     Active Substance: IBUPROFEN
  3. NOVALGIN (METAMIZOLE SODIUM) [Concomitant]
     Active Substance: METAMIZOLE SODIUM
  4. MAGNESIUM [Concomitant]
     Active Substance: MAGNESIUM
  5. NABIXIMOLS [Concomitant]
     Active Substance: NABIXIMOLS

REACTIONS (10)
  - Arthralgia [Not Recovered/Not Resolved]
  - Muscular weakness [Not Recovered/Not Resolved]
  - Intervertebral disc protrusion [Not Recovered/Not Resolved]
  - Post procedural infection [Recovered/Resolved]
  - Lumbar spinal stenosis [Not Recovered/Not Resolved]
  - Coronavirus infection [Recovered/Resolved]
  - Gait disturbance [Not Recovered/Not Resolved]
  - B-lymphocyte count decreased [Recovered/Resolved]
  - Muscle tightness [Not Recovered/Not Resolved]
  - Joint range of motion decreased [Not Recovered/Not Resolved]

NARRATIVE: CASE EVENT DATE: 20191031
